FAERS Safety Report 6325934-2 (Version None)
Quarter: 2009Q3

REPORT INFORMATION
  Report Type: 
  Country: None (occurrence: None)
  Receive Date: 20090824
  Receipt Date: 20090812
  Transmission Date: 20100115
  Serious: Yes (Death, Hospitalization, Other)
  Sender: FDA-Public Use
  Company Number: JP-PFIZER INC-2009202136

PATIENT
  Age: 70 Year

DRUGS (3)
  1. SUNITINIB MALATE [Suspect]
     Indication: GASTROINTESTINAL STROMAL TUMOUR
     Dosage: 50 MG, 1X/DAY
     Route: 048
     Dates: start: 20090403, end: 20090625
  2. LAFUTIDINE [Concomitant]
     Dosage: UNK
     Route: 048
     Dates: start: 20090403, end: 20090428
  3. LASIX [Concomitant]
     Dosage: UNK
     Route: 048
     Dates: end: 20090426

REACTIONS (5)
  - DISEASE PROGRESSION [None]
  - GASTROINTESTINAL STROMAL TUMOUR [None]
  - INTERVERTEBRAL DISCITIS [None]
  - MELAENA [None]
  - PLATELET COUNT DECREASED [None]
